FAERS Safety Report 8204146-1 (Version None)
Quarter: 2012Q1

REPORT INFORMATION
  Report Type: 
  Country: None (occurrence: None)
  Receive Date: 20120313
  Receipt Date: 20120306
  Transmission Date: 20120608
  Serious: Yes (Hospitalization)
  Sender: FDA-Public Use
  Company Number: NL-B.I. PHARMACEUTICALS,INC./RIDGEFIELD-2012-EU-01121EU

PATIENT
  Sex: Male
  Weight: 110 kg

DRUGS (8)
  1. DABIGATRAN [Suspect]
     Indication: ATRIAL FIBRILLATION
     Route: 048
     Dates: start: 20120218
  2. HYDROCHLOROTHIAZIDE [Concomitant]
     Indication: HYPERTENSION
     Dosage: 25 MG
     Route: 048
     Dates: start: 20100315, end: 20120220
  3. LANOXIN [Concomitant]
     Indication: ATRIAL FIBRILLATION
     Dosage: 0.25 MG
     Route: 048
     Dates: start: 20070115
  4. DABIGATRAN [Suspect]
     Indication: CEREBROVASCULAR ACCIDENT PROPHYLAXIS
     Route: 048
     Dates: start: 20090122, end: 20120216
  5. GLUCOPHAGE [Concomitant]
     Indication: DIABETES MELLITUS
     Dosage: 1000 MG
     Route: 048
     Dates: start: 20061108
  6. ATORVASTATIN CALCIUM [Concomitant]
     Indication: HYPERCHOLESTEROLAEMIA
     Dosage: 20 MG
     Route: 048
     Dates: start: 20100315
  7. CYRES [Concomitant]
     Indication: HYPERTENSION
     Dosage: 20 MG
     Route: 048
     Dates: start: 20061108
  8. CORDARONE [Concomitant]
     Indication: ATRIAL FIBRILLATION
     Dosage: 100 MG
     Route: 048
     Dates: start: 20080905

REACTIONS (2)
  - CEREBROVASCULAR ACCIDENT [None]
  - PERIPHERAL ARTERIAL OCCLUSIVE DISEASE [None]
